FAERS Safety Report 6882028-5 (Version None)
Quarter: 2010Q3

REPORT INFORMATION
  Report Type: 
  Country: None (occurrence: None)
  Receive Date: 20100727
  Receipt Date: 20100712
  Transmission Date: 20110219
  Serious: Yes (Other)
  Sender: FDA-Public Use
  Company Number: 2010EK000028

PATIENT

DRUGS (1)
  1. CARDENE [Suspect]
     Indication: HYPERTENSION
     Dosage: IV
     Route: 042

REACTIONS (1)
  - CEREBRAL HAEMATOMA [None]
